FAERS Safety Report 6648149-7 (Version None)
Quarter: 2010Q1

REPORT INFORMATION
  Report Type: 
  Country: None (occurrence: None)
  Receive Date: 20100324
  Receipt Date: 20100319
  Transmission Date: 20100710
  Serious: Yes (Death, Life-Threatening, Hospitalization, Other)
  Sender: FDA-Public Use
  Company Number: PH-BAYER-201010907GPV

PATIENT
  Age: 49 Year
  Sex: Male
  Weight: 40 kg

DRUGS (3)
  1. SORAFENIB [Suspect]
     Indication: HEPATIC NEOPLASM MALIGNANT
     Dosage: TOTAL DAILY DOSE: 400 MG
     Route: 048
     Dates: start: 20090505, end: 20100101
  2. TRAMADOL [Concomitant]
     Indication: PAIN
     Dates: start: 20090619
  3. GODEX [Concomitant]
     Dates: start: 20090505

REACTIONS (3)
  - ACUTE RESPIRATORY FAILURE [None]
  - PLEURAL EFFUSION [None]
  - PNEUMONIA [None]
